FAERS Safety Report 8952927 (Version 3)
Quarter: 2012Q4

REPORT INFORMATION
  Report Type: 
  Country: US (occurrence: US)
  Receive Date: 20121203
  Receipt Date: 20121224
  Transmission Date: 20130627
  Serious: Yes (Other)
  Sender: FDA-Public Use
  Company Number: US-AMGEN-USASP2012076420

PATIENT
  Age: 84 Year
  Sex: Female
  Weight: 61 kg

DRUGS (5)
  1. PROLIA [Suspect]
     Indication: OSTEOPOROSIS
     Dosage: 60 mg/ml, q6mo
     Route: 058
     Dates: start: 20110112, end: 20120629
  2. CALCIUM [Concomitant]
     Dosage: 600 mg, bid
     Route: 048
     Dates: start: 20110604
  3. VITAMIN C                          /00008001/ [Concomitant]
     Dosage: 500 mg, qd
     Route: 048
  4. VITAMIN D /00107901/ [Concomitant]
     Dosage: 1000 unit, qd
     Route: 048
     Dates: start: 20111230
  5. MULTIVITAMINS W/MINERALS [Concomitant]
     Dosage: UNK UNK, qd
     Route: 048

REACTIONS (1)
  - Deafness neurosensory [Not Recovered/Not Resolved]
